FAERS Safety Report 20792602 (Version 1)
Quarter: 2022Q2

REPORT INFORMATION
  Report Type: Spontaneous
  Country: FR (occurrence: FR)
  Receive Date: 20220506
  Receipt Date: 20220506
  Transmission Date: 20220721
  Serious: Yes (Other)
  Sender: FDA-Public Use
  Company Number: FR-AFSSAPS-CN20220643

PATIENT
  Age: 73 Year
  Sex: Female
  Weight: 69 kg

DRUGS (3)
  1. GABAPENTIN [Suspect]
     Active Substance: GABAPENTIN
     Indication: Post herpetic neuralgia
     Dosage: 1200 MILLIGRAM, DAILY
     Route: 048
     Dates: start: 20211128, end: 20220124
  2. GABAPENTIN [Suspect]
     Active Substance: GABAPENTIN
     Indication: Post herpetic neuralgia
     Dosage: 600 MILLIGRAM, DAILY
     Route: 048
     Dates: start: 20211122, end: 20211124
  3. GABAPENTIN [Suspect]
     Active Substance: GABAPENTIN
     Dosage: 900 MILLIGRAM, DAILY
     Route: 048
     Dates: start: 20211125, end: 20211127

REACTIONS (1)
  - Hepatitis [Recovered/Resolved]

NARRATIVE: CASE EVENT DATE: 20220122
